FAERS Safety Report 8625482-0 (Version None)
Quarter: 2012Q3

REPORT INFORMATION
  Report Type: 
  Country: None (occurrence: None)
  Receive Date: 20120827
  Receipt Date: 20120823
  Transmission Date: 20120928
  Serious: Yes (Other)
  Sender: FDA-Public Use
  Company Number: US-ROCHE-1018120

PATIENT
  Sex: Male
  Weight: 86.26 kg

DRUGS (1)
  1. ACCUTANE [Suspect]
     Indication: ACNE CYSTIC
     Dates: start: 20000612, end: 20001202

REACTIONS (3)
  - INJURY [None]
  - COLITIS ULCERATIVE [None]
  - DEPRESSION [None]
